FAERS Safety Report 22308475 (Version 1)
Quarter: 2023Q2

REPORT INFORMATION
  Report Type: Spontaneous
  Country: US (occurrence: None)
  Receive Date: 20230511
  Receipt Date: 20230511
  Transmission Date: 20230722
  Serious: No
  Sender: FDA-Public Use
  Company Number: US-ROCHE-3231245

PATIENT
  Sex: Male

DRUGS (1)
  1. OCREVUS [Suspect]
     Active Substance: OCRELIZUMAB
     Indication: Primary progressive multiple sclerosis
     Dosage: 300 MG DOSE, SECOND INFUSION
     Route: 065

REACTIONS (5)
  - Neck pain [Unknown]
  - Eye disorder [Unknown]
  - Dizziness [Unknown]
  - Flushing [Unknown]
  - Off label use [Unknown]
